FAERS Safety Report 21824889 (Version 1)
Quarter: 2023Q1

REPORT INFORMATION
  Report Type: Spontaneous
  Country: US (occurrence: US)
  Receive Date: 20230105
  Receipt Date: 20230105
  Transmission Date: 20230417
  Serious: No
  Sender: FDA-Public Use
  Company Number: US-ABBVIE-4219073

PATIENT
  Sex: Female

DRUGS (1)
  1. SYNTHROID [Suspect]
     Active Substance: LEVOTHYROXINE SODIUM
     Indication: Thyroid disorder
     Route: 048

REACTIONS (6)
  - Pain of skin [Unknown]
  - Palpitations [Unknown]
  - Skin exfoliation [Unknown]
  - Hyperhidrosis [Unknown]
  - Skin fissures [Unknown]
  - Dry skin [Unknown]
